FAERS Safety Report 4886393-X (Version None)
Quarter: 2006Q1

REPORT INFORMATION
  Report Type: 
  Country: None (occurrence: None)
  Receive Date: 20060120
  Receipt Date: 20051017
  Transmission Date: 20060701
  Serious: Yes (Death, Hospitalization, Other)
  Sender: FDA-Public Use
  Company Number: US-MERCK-0510USA07651

PATIENT
  Age: 73 Year
  Sex: Female
  Weight: 75 kg

DRUGS (7)
  1. VIOXX [Suspect]
     Indication: OSTEOARTHRITIS
     Route: 048
     Dates: start: 20000301, end: 20030705
  2. LOTREL [Concomitant]
     Route: 065
  3. CLONIDINE [Concomitant]
     Route: 065
     Dates: start: 19980101, end: 20030701
  4. ASPIRIN [Concomitant]
     Route: 048
  5. ATENOLOL [Concomitant]
     Route: 065
     Dates: start: 20000501, end: 20030701
  6. PRANDIN [Concomitant]
     Route: 065
  7. DETROL [Concomitant]
     Route: 065

REACTIONS (6)
  - CARDIAC FAILURE [None]
  - CEREBROVASCULAR ACCIDENT [None]
  - GASTROINTESTINAL HAEMORRHAGE [None]
  - HYPOKALAEMIA [None]
  - PLEURAL EFFUSION [None]
  - URINARY TRACT INFECTION [None]
